FAERS Safety Report 4907903-X (Version None)
Quarter: 2006Q1

REPORT INFORMATION
  Report Type: 
  Country: None (occurrence: None)
  Receive Date: 20060208
  Receipt Date: 20060123
  Transmission Date: 20060701
  Serious: Yes (Congenital Anomaly)
  Sender: FDA-Public Use
  Company Number: 2006-026

PATIENT
  Sex: Female

DRUGS (2)
  1. CITALOPRAM [Suspect]
     Indication: POSTPARTUM DEPRESSION
     Dosage: TRANSPLACENTAL
     Route: 064
  2. OXYTETRACYCLINE [Suspect]
     Indication: SKIN DISORDER
     Dosage: TRANSPLACENTAL
     Route: 064

REACTIONS (4)
  - DEVELOPMENTAL DELAY [None]
  - DRUG EXPOSURE DURING PREGNANCY [None]
  - HEAD DEFORMITY [None]
  - SYNOSTOSIS [None]
